FAERS Safety Report 23745632 (Version 1)
Quarter: 2024Q2

REPORT INFORMATION
  Report Type: Spontaneous
  Country: US (occurrence: US)
  Receive Date: 20240416
  Receipt Date: 20240416
  Transmission Date: 20240716
  Serious: Yes (Other)
  Sender: FDA-Public Use
  Company Number: US-UCBSA-2024017695

PATIENT
  Sex: Male

DRUGS (1)
  1. BIMZELX [Suspect]
     Active Substance: BIMEKIZUMAB-BKZX
     Indication: Psoriasis
     Dosage: 320 MILLIGRAM, EV 4 WEEKS WEEKS 0, 4, 8, 12 AND 16
     Route: 058
     Dates: start: 202401

REACTIONS (2)
  - Hernia repair [Unknown]
  - Hernia [Unknown]

NARRATIVE: CASE EVENT DATE: 20240101
